FAERS Safety Report 21537192 (Version 2)
Quarter: 2022Q4

REPORT INFORMATION
  Report Type: Spontaneous
  Country: US (occurrence: US)
  Receive Date: 20221101
  Receipt Date: 20221220
  Transmission Date: 20230112
  Serious: Yes (Other)
  Sender: FDA-Public Use
  Company Number: US-BAYER-2022A149470

PATIENT
  Sex: Female

DRUGS (1)
  1. KOVALTRY [Suspect]
     Active Substance: ANTIHEMOPHILIC FACTOR, HUMAN RECOMBINANT
     Indication: Acquired haemophilia
     Dosage: 2000 DF, PRN
     Route: 042
     Dates: start: 20220903

REACTIONS (2)
  - Limb injury [None]
  - Menstruation irregular [None]
